FAERS Safety Report 11134468 (Version 1)
Quarter: 2015Q2

REPORT INFORMATION
  Report Type: Spontaneous
  Country: AU (occurrence: AU)
  Receive Date: 20150525
  Receipt Date: 20150525
  Transmission Date: 20150821
  Serious: Yes (Other)
  Sender: FDA-Public Use
  Company Number: AU-ASTRAZENECA-2015SE47189

PATIENT

DRUGS (2)
  1. TAMOXIFEN [Suspect]
     Active Substance: TAMOXIFEN
     Route: 048
     Dates: start: 1992, end: 201008
  2. FASLODEX [Suspect]
     Active Substance: FULVESTRANT
     Route: 030
     Dates: start: 201411

REACTIONS (2)
  - Drug intolerance [Unknown]
  - Disease progression [Unknown]
